FAERS Safety Report 4948801-5 (Version None)
Quarter: 2006Q1

REPORT INFORMATION
  Report Type: 
  Country: None (occurrence: None)
  Receive Date: 20060321
  Receipt Date: 20060110
  Transmission Date: 20060701
  Serious: Yes (Hospitalization, Other)
  Sender: FDA-Public Use
  Company Number: PHEH2006US00802

PATIENT
  Age: 44 Year
  Sex: Male
  Weight: 113.38 kg

DRUGS (10)
  1. METOPROLOL [Concomitant]
     Indication: HYPERTENSION
     Dosage: 50 UNK, BID
     Route: 048
  2. AMLODIPINE BESYLATE [Concomitant]
     Indication: HYPERTENSION
     Dosage: 10 UNK, QD
     Route: 048
  3. HYDROCHLOROTHIAZIDE [Concomitant]
     Indication: HYPERTENSION
     Dosage: 12.5 UNK, QD
     Route: 048
     Dates: start: 20050801
  4. ZOLOFT [Concomitant]
     Indication: DEPRESSION
     Dosage: 50 MG, QD
     Route: 048
  5. TRAZODONE [Concomitant]
     Indication: SLEEP DISORDER
     Dosage: 50 MG, QD
     Route: 048
     Dates: start: 20050801
  6. SEROQUEL [Concomitant]
     Indication: PSYCHOTIC DISORDER
     Dosage: 25 MG, QD
     Route: 048
     Dates: start: 20050801
  7. MINOXIDIL [Concomitant]
     Indication: HYPERTENSION
     Dosage: 7.5 UNK, BID
     Route: 048
  8. SANDOSTATIN LAR [Suspect]
     Indication: ACROMEGALY
     Dosage: 30 MG, Q28 DAYS
     Route: 030
     Dates: start: 20051018, end: 20051223
  9. LEVOTHYROXINE SODIUM [Concomitant]
     Indication: HYPOTHYROIDISM
     Dosage: 50 MG, QD
     Route: 048
  10. LANTUS [Concomitant]
     Dosage: 5 UNITS, QHS

REACTIONS (7)
  - CEREBRAL HAEMORRHAGE [None]
  - INTERNATIONAL NORMALISED RATIO INCREASED [None]
  - OEDEMA PERIPHERAL [None]
  - PROTHROMBIN TIME PROLONGED [None]
  - PROTHROMBIN TIME RATIO INCREASED [None]
  - VENA CAVA FILTER INSERTION [None]
  - VENOUS THROMBOSIS [None]
